FAERS Safety Report 11955915 (Version 1)
Quarter: 2016Q1

REPORT INFORMATION
  Report Type: Spontaneous
  Country: US (occurrence: US)
  Receive Date: 20160126
  Receipt Date: 20160126
  Transmission Date: 20160526
  Serious: No
  Sender: FDA-Public Use
  Company Number: US-ABBVIE-15K-163-1345181-00

PATIENT
  Age: 49 Year
  Sex: Female
  Weight: 70.37 kg

DRUGS (1)
  1. HUMIRA [Suspect]
     Active Substance: ADALIMUMAB
     Indication: ANKYLOSING SPONDYLITIS
     Route: 065
     Dates: start: 201411

REACTIONS (7)
  - Wrong technique in product usage process [Unknown]
  - Drug dose omission [Unknown]
  - Device issue [Unknown]
  - Fatigue [Unknown]
  - Product quality issue [Unknown]
  - Drug effect decreased [Unknown]
  - Arthralgia [Not Recovered/Not Resolved]

NARRATIVE: CASE EVENT DATE: 2015
